FAERS Safety Report 24104667 (Version 2)
Quarter: 2024Q3

REPORT INFORMATION
  Report Type: Report from Study
  Country: US (occurrence: US)
  Receive Date: 20240717
  Receipt Date: 20240829
  Transmission Date: 20241016
  Serious: Yes (Other)
  Sender: BRISTOL MYERS SQUIBB
  Company Number: US-BRISTOL-MYERS SQUIBB COMPANY-2024-096347

PATIENT
  Age: 57 Year
  Sex: Female
  Weight: 136.08 kg

DRUGS (1)
  1. ORENCIA [Suspect]
     Active Substance: ABATACEPT
     Indication: Rheumatoid arthritis
     Dosage: DOSE : UNAVAILABLE;     FREQ : UNAVAILABLE
     Route: 058
     Dates: start: 202404

REACTIONS (7)
  - Device operational issue [Unknown]
  - Hypersensitivity [Unknown]
  - Product dose omission issue [Unknown]
  - Cataract [Unknown]
  - Device defective [Unknown]
  - Device deployment issue [Unknown]
  - Device safety feature issue [Unknown]

NARRATIVE: CASE EVENT DATE: 20240612
